FAERS Safety Report 8541092-8 (Version None)
Quarter: 2012Q3

REPORT INFORMATION
  Report Type: 
  Country: None (occurrence: None)
  Receive Date: 20120726
  Receipt Date: 20110822
  Transmission Date: 20120928
  Serious: No
  Sender: FDA-Public Use
  Company Number: US-ASTRAZENECA-2011SE50635

PATIENT
  Sex: Female

DRUGS (13)
  1. SERTRALINE HYDROCHLORIDE [Concomitant]
  2. GABAPENTIN [Concomitant]
  3. BENZTROPINE MESYLATE [Concomitant]
  4. LAMOTRIGINE [Concomitant]
  5. HALOPERIDOL [Concomitant]
  6. TRAMADOL HYDROCHLORIDE [Concomitant]
  7. SEROQUEL [Suspect]
     Route: 048
  8. SEROQUEL [Suspect]
     Route: 048
  9. AMOXICILLIN [Concomitant]
  10. POTASSIUM CHLORIDE [Concomitant]
  11. FEXOFENADINE [Concomitant]
  12. BUSPIRONE HCL [Concomitant]
  13. FUROSEMIDE [Concomitant]

REACTIONS (3)
  - SKIN DISORDER [None]
  - SLEEP DISORDER [None]
  - ANXIETY [None]
